FAERS Safety Report 9773686 (Version 2)
Quarter: 2014Q1

REPORT INFORMATION
  Report Type: Report from Study
  Country: AR (occurrence: AR)
  Receive Date: 20131219
  Receipt Date: 20140210
  Transmission Date: 20141002
  Serious: Yes (Other)
  Sender: FDA-Public Use
  Company Number: PHHY2013AR149040

PATIENT
  Sex: Male

DRUGS (1)
  1. GLIVEC [Suspect]
     Indication: CHRONIC MYELOID LEUKAEMIA
     Dosage: 600 MG, TABLETS
     Route: 048
     Dates: start: 200507

REACTIONS (3)
  - Cholelithiasis [Unknown]
  - Gallbladder pain [Unknown]
  - Eyelid oedema [Unknown]
